FAERS Safety Report 9896845 (Version 1)
Quarter: 2014Q1

REPORT INFORMATION
  Report Type: Spontaneous
  Country: CH (occurrence: CH)
  Receive Date: 20140213
  Receipt Date: 20140213
  Transmission Date: 20141002
  Serious: Yes (Hospitalization, Other)
  Sender: FDA-Public Use
  Company Number: CH-AMGEN-CHESP2014009883

PATIENT
  Age: 68 Year
  Sex: Male

DRUGS (5)
  1. XGEVA [Suspect]
     Indication: PRODUCT USED FOR UNKNOWN INDICATION
     Route: 065
  2. TARCEVA [Concomitant]
  3. CRIZOTINIB [Concomitant]
     Dosage: 250 MG, UNK
     Route: 065
     Dates: start: 201310
  4. CARBOPLATIN [Concomitant]
  5. GEMCITABINE [Concomitant]

REACTIONS (4)
  - Pneumonitis [Unknown]
  - Metastases to liver [Unknown]
  - Lung neoplasm malignant [Unknown]
  - General physical health deterioration [Unknown]
